FAERS Safety Report 22596133 (Version 1)
Quarter: 2023Q2

REPORT INFORMATION
  Report Type: Spontaneous
  Country: CN (occurrence: CN)
  Receive Date: 20230613
  Receipt Date: 20230613
  Transmission Date: 20230721
  Serious: Yes (Other)
  Sender: FDA-Public Use
  Company Number: CN-Merck Healthcare KGaA-9407545

PATIENT
  Age: 67 Year
  Sex: Male
  Weight: 70 kg

DRUGS (3)
  1. ERBITUX [Suspect]
     Active Substance: CETUXIMAB
     Indication: Hypopharyngeal cancer
     Dosage: 700 MG, DAILY
     Route: 041
     Dates: start: 20230421, end: 20230421
  2. NEDAPLATIN [Suspect]
     Active Substance: NEDAPLATIN
     Indication: Hypopharyngeal cancer
     Dosage: 40 MG, DAILY
     Route: 041
     Dates: start: 20230421, end: 20230423
  3. FLUOROURACIL [Suspect]
     Active Substance: FLUOROURACIL
     Indication: Hypopharyngeal cancer
     Dosage: 1.25 G, DAILY
     Route: 065
     Dates: start: 20230421, end: 20230425

REACTIONS (1)
  - Myelosuppression [Recovering/Resolving]

NARRATIVE: CASE EVENT DATE: 20230520
